FAERS Safety Report 5693813-X (Version None)
Quarter: 2008Q2

REPORT INFORMATION
  Report Type: 
  Country: None (occurrence: None)
  Receive Date: 20080403
  Receipt Date: 19941231
  Transmission Date: 20081010
  Serious: Yes (Death)
  Sender: FDA-Public Use
  Company Number: FR-ROCHE-940500182001

PATIENT

DRUGS (1)
  1. ROCEPHIN [Suspect]
     Route: 030

REACTIONS (1)
  - DEATH [None]
